FAERS Safety Report 8347006-8 (Version None)
Quarter: 2012Q2

REPORT INFORMATION
  Report Type: 
  Country: None (occurrence: None)
  Receive Date: 20120509
  Receipt Date: 20120502
  Transmission Date: 20120825
  Serious: Yes (Hospitalization, Other)
  Sender: FDA-Public Use
  Company Number: US-PURDUE-USA-2012-0086512

PATIENT
  Sex: Female

DRUGS (4)
  1. OXYCONTIN [Suspect]
     Indication: PRODUCT USED FOR UNKNOWN INDICATION
     Dosage: 80 MG, TID
  2. BENZODIAZEPINE DERIVATIVES [Suspect]
     Indication: DRUG ABUSE
  3. OXYCONTIN [Suspect]
     Dosage: 40 MG, TID
  4. COCAINE [Suspect]
     Indication: DRUG ABUSE

REACTIONS (2)
  - HOSPITALISATION [None]
  - SUBSTANCE ABUSE [None]
